FAERS Safety Report 22526674 (Version 5)
Quarter: 2023Q4

REPORT INFORMATION
  Report Type: Report from Study
  Country: AU (occurrence: AU)
  Receive Date: 20230606
  Receipt Date: 20231102
  Transmission Date: 20240109
  Serious: Yes (Hospitalization)
  Sender: FDA-Public Use
  Company Number: AU-INCYTE CORPORATION-2023IN005160

PATIENT

DRUGS (6)
  1. RETIFANLIMAB [Suspect]
     Active Substance: RETIFANLIMAB
     Indication: Anal cancer
     Dosage: 500 MILLIGRAM
     Route: 042
     Dates: start: 20220908, end: 20230420
  2. CARBOPLATIN [Suspect]
     Active Substance: CARBOPLATIN
     Indication: Anal cancer
     Dosage: AUC5
     Route: 042
     Dates: start: 20220908
  3. ACETAMINOPHEN [Concomitant]
     Active Substance: ACETAMINOPHEN
     Indication: Prophylaxis
     Dosage: 1 TABLET ONCE
     Route: 048
     Dates: start: 20220801
  4. METOCLOPRAMIDE [Concomitant]
     Active Substance: METOCLOPRAMIDE
     Indication: Prophylaxis
     Dosage: 10 MILLIGRAM, PRN
     Route: 048
     Dates: start: 20220908
  5. DEXAMETHASONE [Concomitant]
     Active Substance: DEXAMETHASONE
     Indication: Prophylaxis
     Dosage: 4 MILLIGRAM, ONCE
     Route: 048
     Dates: start: 20221006
  6. CEPHALEXIN [Concomitant]
     Active Substance: CEPHALEXIN
     Indication: Adverse event
     Dosage: 500 MILLIGRAM, BID
     Route: 048
     Dates: start: 20220909

REACTIONS (1)
  - Immune-mediated hepatitis [Recovered/Resolved]

NARRATIVE: CASE EVENT DATE: 20230516
